FAERS Safety Report 6169026-4 (Version None)
Quarter: 2009Q2

REPORT INFORMATION
  Report Type: 
  Country: None (occurrence: None)
  Receive Date: 20090427
  Receipt Date: 20090420
  Transmission Date: 20091009
  Serious: Yes (Other)
  Sender: FDA-Public Use
  Company Number: US-ASTRAZENECA-2009UW09945

PATIENT
  Age: 12 Year
  Sex: Female
  Weight: 39 kg

DRUGS (5)
  1. SEROQUEL [Suspect]
     Indication: SCHIZOPHRENIA
     Route: 048
     Dates: start: 20081201, end: 20090412
  2. SEROQUEL [Suspect]
     Indication: BIPOLAR DISORDER
     Route: 048
     Dates: start: 20081201, end: 20090412
  3. SEROQUEL [Suspect]
     Route: 048
     Dates: start: 20090412
  4. SEROQUEL [Suspect]
     Route: 048
     Dates: start: 20090412
  5. ADDERALL 10 [Concomitant]
     Route: 048

REACTIONS (5)
  - DELIRIUM [None]
  - HALLUCINATION [None]
  - ILL-DEFINED DISORDER [None]
  - INCOHERENT [None]
  - INSOMNIA [None]
